FAERS Safety Report 11626774 (Version 1)
Quarter: 2015Q4

REPORT INFORMATION
  Report Type: Spontaneous
  Country: US (occurrence: US)
  Receive Date: 20151013
  Receipt Date: 20151013
  Transmission Date: 20160304
  Serious: Yes (Other)
  Sender: FDA-Public Use
  Company Number: US-ASTRAZENECA-2015SE95039

PATIENT
  Sex: Female

DRUGS (3)
  1. BRILINTA [Suspect]
     Active Substance: TICAGRELOR
     Indication: TYPE 2 DIABETES MELLITUS
     Route: 048
     Dates: start: 201508, end: 201509
  2. LISINOPRIL. [Suspect]
     Active Substance: LISINOPRIL
     Route: 048
  3. BYDUREON [Suspect]
     Active Substance: EXENATIDE
     Dosage: DOSE UNKNOWN
     Route: 065
     Dates: start: 201508, end: 201509

REACTIONS (7)
  - Thrombosis [Unknown]
  - Asthenia [Unknown]
  - Dizziness [Unknown]
  - Musculoskeletal discomfort [Unknown]
  - Full blood count decreased [Unknown]
  - Blood glucose decreased [Unknown]
  - Drug dose omission [Unknown]
